FAERS Safety Report 8448064-2 (Version None)
Quarter: 2012Q2

REPORT INFORMATION
  Report Type: 
  Country: None (occurrence: None)
  Receive Date: 20120612
  Receipt Date: 20120601
  Transmission Date: 20120825
  Serious: Yes (Hospitalization)
  Sender: FDA-Public Use
  Company Number: 2012SP029441

PATIENT
  Age: 69 Year
  Sex: Female

DRUGS (4)
  1. ASMANEX TWISTHALER [Suspect]
     Indication: EMPHYSEMA
     Dosage: 200 MCG;BID
     Dates: start: 20120401
  2. ASMANEX TWISTHALER [Suspect]
     Indication: CHRONIC OBSTRUCTIVE PULMONARY DISEASE
     Dosage: 200 MCG;BID
     Dates: start: 20120401
  3. SPIRIVA [Concomitant]
  4. FORADIL [Concomitant]

REACTIONS (7)
  - DRUG DOSE OMISSION [None]
  - WHEEZING [None]
  - DEVICE FAILURE [None]
  - CONDITION AGGRAVATED [None]
  - BREATH SOUNDS ABNORMAL [None]
  - RESPIRATORY DISORDER [None]
  - OFF LABEL USE [None]
